FAERS Safety Report 8315532 (Version 4)
Quarter: 2013Q3

REPORT INFORMATION
  Report Type: Report from Study
  Country: US (occurrence: US)
  Receive Date: 20111229
  Receipt Date: 20130910
  Transmission Date: 20140515
  Serious: Yes (Death, Hospitalization)
  Sender: FDA-Public Use
  Company Number: US-ELI_LILLY_AND_COMPANY-US201112005705

PATIENT
  Sex: Female
  Weight: 54.4 kg

DRUGS (1)
  1. TERIPARATIDE [Suspect]
     Indication: OSTEOPOROSIS
     Dosage: 20 UG, QD
     Route: 058
     Dates: start: 20110628

REACTIONS (2)
  - Death [Fatal]
  - Dementia Alzheimer^s type [Unknown]
